FAERS Safety Report 6809857-8 (Version None)
Quarter: 2010Q2

REPORT INFORMATION
  Report Type: 
  Country: None (occurrence: None)
  Receive Date: 20100630
  Receipt Date: 20100625
  Transmission Date: 20101027
  Serious: Yes (Other)
  Sender: FDA-Public Use
  Company Number: A0867440A

PATIENT
  Sex: Female

DRUGS (2)
  1. NICOTINE [Suspect]
     Indication: SMOKING CESSATION THERAPY
     Route: 062
     Dates: start: 19900101, end: 19900101
  2. VITAMIN B [Concomitant]

REACTIONS (5)
  - DRUG ADMINISTRATION ERROR [None]
  - HYPOVITAMINOSIS [None]
  - INFLUENZA [None]
  - MALAISE [None]
  - PNEUMONIA [None]
